FAERS Safety Report 19779399 (Version 1)
Quarter: 2021Q3

REPORT INFORMATION
  Report Type: Spontaneous
  Country: US (occurrence: US)
  Receive Date: 20210830
  Receipt Date: 20210830
  Transmission Date: 20211014
  Serious: No
  Sender: FDA-Public Use
  Company Number: None

PATIENT
  Sex: Male

DRUGS (1)
  1. SUTENT [Suspect]
     Active Substance: SUNITINIB MALATE
     Indication: RENAL CANCER
     Dosage: FREQUENCY: TAKE 1 CAPSULE BY MOUTH ONCE DAILY AT THE SAME TIME FOR 4 WEEKS ON, THEN 2 WEEKS OFF
     Route: 048
     Dates: start: 202105, end: 20210629

REACTIONS (2)
  - Therapy cessation [None]
  - Drug ineffective [None]
